FAERS Safety Report 18553112 (Version 2)
Quarter: 2020Q4

REPORT INFORMATION
  Report Type: Spontaneous
  Country: IT (occurrence: IT)
  Receive Date: 20201127
  Receipt Date: 20201203
  Transmission Date: 20210114
  Serious: Yes (Death, Life-Threatening, Hospitalization, Other)
  Sender: FDA-Public Use
  Company Number: IT-ALKEM LABORATORIES LIMITED-IT-ALKEM-2020-08355

PATIENT
  Age: 32 Year
  Sex: Female
  Weight: 76 kg

DRUGS (4)
  1. MYCOPHENOLATE MOFETIL. [Suspect]
     Active Substance: MYCOPHENOLATE MOFETIL
     Indication: IMMUNOSUPPRESSANT DRUG THERAPY
     Dosage: 2 GRAM, QD
     Route: 065
  2. CICLOSPORIN [Suspect]
     Active Substance: CYCLOSPORINE
     Indication: IMMUNOSUPPRESSANT DRUG THERAPY
     Dosage: 1 MILLIGRAM/KILOGRAM, QD
     Route: 042
  3. METHYLPREDNISONE [Suspect]
     Active Substance: METHYLPREDNISOLONE
     Indication: IMMUNOSUPPRESSANT DRUG THERAPY
     Dosage: 0.5 MILLIGRAM/KILOGRAM, QD
     Route: 042
  4. HUMAN CYTOMEGALOVIRUS IMMUNOGLOBULIN [Concomitant]
     Indication: ANTIVIRAL PROPHYLAXIS
     Dosage: 75 INTERNATIONAL UNIT/KILOGRAM, EVERY 4 DAY
     Route: 042

REACTIONS (8)
  - Klebsiella infection [Fatal]
  - Peritonitis [Recovering/Resolving]
  - Acute respiratory failure [Recovering/Resolving]
  - Septic shock [Fatal]
  - Cytomegalovirus infection [Recovering/Resolving]
  - Large intestine perforation [Recovering/Resolving]
  - Colitis [Recovering/Resolving]
  - Wound dehiscence [Fatal]
